FAERS Safety Report 25152884 (Version 1)
Quarter: 2025Q2

REPORT INFORMATION
  Report Type: Spontaneous
  Country: US (occurrence: US)
  Receive Date: 20250403
  Receipt Date: 20250403
  Transmission Date: 20250717
  Serious: Yes (Other)
  Sender: NOVO NORDISK
  Company Number: US-NOVOPROD-1398684

PATIENT
  Age: 90 Year

DRUGS (2)
  1. TRESIBA [Suspect]
     Active Substance: INSULIN DEGLUDEC
     Indication: Type 2 diabetes mellitus
     Dosage: 25 IU, QD (IN MORNING)
     Route: 058
     Dates: start: 2024
  2. NOVOLOG [Suspect]
     Active Substance: INSULIN ASPART
     Indication: Type 2 diabetes mellitus
     Route: 058
     Dates: start: 2015

REACTIONS (1)
  - Eye haemorrhage [Recovered/Resolved]
